FAERS Safety Report 5408425-2 (Version None)
Quarter: 2007Q3

REPORT INFORMATION
  Report Type: 
  Country: None (occurrence: None)
  Receive Date: 20070808
  Receipt Date: 20070806
  Transmission Date: 20080115
  Serious: Yes (Other)
  Sender: FDA-Public Use
  Company Number: DE-BAYER-200710857BVD

PATIENT
  Sex: Male

DRUGS (3)
  1. SORAFENIB [Suspect]
     Indication: HEPATIC CANCER METASTATIC
     Dates: start: 20070419
  2. DOXORUBICIN [Concomitant]
     Dates: start: 20070704
  3. CISPLATIN [Concomitant]
     Dates: start: 20070704

REACTIONS (4)
  - DYSPNOEA [None]
  - PAIN [None]
  - PYREXIA [None]
  - SLEEP DISORDER [None]
